FAERS Safety Report 10898588 (Version 1)
Quarter: 2015Q1

REPORT INFORMATION
  Report Type: Spontaneous
  Country: US (occurrence: None)
  Receive Date: 20150303
  Receipt Date: 20150303
  Transmission Date: 20150721
  Serious: No
  Sender: FDA-Public Use
  Company Number: None

PATIENT
  Age: 53 Year
  Sex: Female
  Weight: 108.86 kg

DRUGS (5)
  1. LAMICTAL [Concomitant]
     Active Substance: LAMOTRIGINE
  2. IBUPROFEN. [Concomitant]
     Active Substance: IBUPROFEN
  3. ACETAMINOPHEN. [Concomitant]
     Active Substance: ACETAMINOPHEN
  4. VENLAFAXINE ER 75 MG [Suspect]
     Active Substance: VENLAFAXINE HYDROCHLORIDE
     Indication: DEPRESSION
     Route: 048
     Dates: start: 20150202, end: 20150226
  5. WELLBUTRIN [Concomitant]
     Active Substance: BUPROPION HYDROCHLORIDE

REACTIONS (5)
  - Drug withdrawal syndrome [None]
  - Paraesthesia [None]
  - Product quality issue [None]
  - Dizziness [None]
  - Disturbance in attention [None]

NARRATIVE: CASE EVENT DATE: 20150226
